FAERS Safety Report 10973150 (Version 1)
Quarter: 2015Q2

REPORT INFORMATION
  Report Type: Spontaneous
  Country: US (occurrence: US)
  Receive Date: 20150401
  Receipt Date: 20150401
  Transmission Date: 20150821
  Serious: Yes (Hospitalization, Other)
  Sender: FDA-Public Use
  Company Number: US-ROCHE-1557308

PATIENT
  Sex: Female

DRUGS (1)
  1. HERCEPTIN [Suspect]
     Active Substance: TRASTUZUMAB
     Indication: BREAST CANCER METASTATIC
     Route: 065

REACTIONS (5)
  - Hypersensitivity [Unknown]
  - Idiosyncratic drug reaction [Unknown]
  - Hypertension [Unknown]
  - Tachycardia [Unknown]
  - Hypoxia [Unknown]
